FAERS Safety Report 7095408-2 (Version None)
Quarter: 2010Q4

REPORT INFORMATION
  Report Type: 
  Country: None (occurrence: None)
  Receive Date: 20101111
  Receipt Date: 20101102
  Transmission Date: 20110411
  Serious: Yes (Life-Threatening, Other)
  Sender: FDA-Public Use
  Company Number: GT-BAXTER-2010BH024059

PATIENT
  Age: 76 Year
  Sex: Male
  Weight: 55 kg

DRUGS (4)
  1. BUMINATE 25% [Suspect]
     Indication: HYPOALBUMINAEMIA
     Route: 042
     Dates: start: 20100917
  2. BUMINATE 25% [Suspect]
     Indication: PROTEIN TOTAL DECREASED
     Route: 042
     Dates: start: 20100917
  3. THALIDOMIDE [Concomitant]
     Indication: PROSTATE CANCER
     Route: 048
     Dates: start: 20100801
  4. XARELTO [Concomitant]
     Indication: THROMBOSIS PROPHYLAXIS
     Route: 048
     Dates: start: 20100801

REACTIONS (2)
  - HYPERSENSITIVITY [None]
  - RESPIRATORY DISTRESS [None]
